FAERS Safety Report 14034305 (Version 1)
Quarter: 2017Q4

REPORT INFORMATION
  Report Type: Other
  Country: IT (occurrence: IT)
  Receive Date: 20171003
  Receipt Date: 20171003
  Transmission Date: 20180321
  Serious: Yes (Death, Hospitalization)
  Sender: FDA-Public Use
  Company Number: IT-GE HEALTHCARE-OMPQ-PR-1611S-2028

PATIENT

DRUGS (13)
  1. OMNIPAQUE [Suspect]
     Active Substance: IOHEXOL
     Indication: PRODUCT USED FOR UNKNOWN INDICATION
     Dosage: UNK UNK, SINGLE
     Route: 065
     Dates: start: 20161014, end: 20161014
  2. KANRENOL [Concomitant]
     Active Substance: CANRENOATE POTASSIUM
  3. BISOPROLOL EMIFUMARATO [Concomitant]
  4. LUVION (CANRENOIC ACID) [Concomitant]
     Active Substance: CANRENOIC ACID
     Dosage: ,
  5. EUTIROX [Concomitant]
     Active Substance: LEVOTHYROXINE SODIUM
     Dosage: ,
  6. CLEXANE [Concomitant]
     Active Substance: ENOXAPARIN SODIUM
  7. VANCOTEX [Suspect]
     Active Substance: VANCOMYCIN HYDROCHLORIDE
     Indication: INFECTION
     Dosage: ,
     Route: 042
     Dates: start: 20161001, end: 20161023
  8. TRIAZOLAM. [Concomitant]
     Active Substance: TRIAZOLAM
  9. MORFINA [Concomitant]
     Active Substance: MORPHINE HYDROCHLORIDE
     Dosage: ,
     Route: 042
  10. CARDIO ASA [Concomitant]
     Active Substance: ASPIRIN
     Dosage: ,
     Route: 048
  11. LEVOFLOXACINA [Suspect]
     Active Substance: LEVOFLOXACIN
     Indication: INFECTION
     Dosage: ,
     Route: 042
     Dates: start: 20161001, end: 20161023
  12. CLOPIDOGREL [Suspect]
     Active Substance: CLOPIDOGREL BISULFATE
     Indication: CARDIAC DISORDER
     Dosage: ,
     Route: 048
     Dates: start: 20161005, end: 20161023
  13. LASIX [Concomitant]
     Active Substance: FUROSEMIDE
     Dosage: ,
     Route: 042

REACTIONS (2)
  - Skin exfoliation [Fatal]
  - Toxic epidermal necrolysis [Fatal]

NARRATIVE: CASE EVENT DATE: 20161016
